FAERS Safety Report 8110350-3 (Version None)
Quarter: 2012Q1

REPORT INFORMATION
  Report Type: 
  Country: None (occurrence: None)
  Receive Date: 20120202
  Receipt Date: 20120126
  Transmission Date: 20120608
  Serious: Yes (Hospitalization)
  Sender: FDA-Public Use
  Company Number: AU-ROCHE-1035173

PATIENT
  Sex: Male

DRUGS (2)
  1. VEMURAFENIB [Suspect]
  2. VEMURAFENIB [Suspect]
     Indication: PRODUCT USED FOR UNKNOWN INDICATION

REACTIONS (3)
  - FALL [None]
  - HYPONATRAEMIA [None]
  - CONFUSIONAL STATE [None]
